FAERS Safety Report 22053207 (Version 3)
Quarter: 2023Q2

REPORT INFORMATION
  Report Type: Report from Study
  Country: TH (occurrence: TH)
  Receive Date: 20230302
  Receipt Date: 20230427
  Transmission Date: 20230722
  Serious: Yes (Hospitalization, Other)
  Sender: FDA-Public Use
  Company Number: TH-002147023-NVSC2023TH019728

PATIENT
  Age: 63 Year
  Sex: Female
  Weight: 70.3 kg

DRUGS (10)
  1. KISQALI [Suspect]
     Active Substance: RIBOCICLIB
     Indication: Breast cancer metastatic
     Dosage: 3 DOSAGE FORM, QD (TOTAL 600 MG), AFTER BREAKFAST ? TAKING 3 WEEKS (21 DAYS), SKIPPING 1 WEEK (7 DAY
     Route: 048
  2. KISQALI [Suspect]
     Active Substance: RIBOCICLIB
     Dosage: 600 MG, QD (TAKING 3 WEEKS, SKIPPING 1 WEEK)
     Route: 065
  3. TAMOXIFEN [Suspect]
     Active Substance: TAMOXIFEN
     Indication: Product used for unknown indication
     Dosage: UNK
     Route: 065
     Dates: start: 20201022
  4. LETROZOLE [Suspect]
     Active Substance: LETROZOLE
     Indication: Product used for unknown indication
     Dosage: UNK
     Route: 065
     Dates: start: 20180419
  5. FULVESTRANT [Concomitant]
     Active Substance: FULVESTRANT
     Indication: Product used for unknown indication
     Dosage: 250 MG (LEFT HIP)
     Route: 030
  6. FULVESTRANT [Concomitant]
     Active Substance: FULVESTRANT
     Dosage: 250 MG (RIGHT HIP)
     Route: 030
  7. FULVESTRANT [Concomitant]
     Active Substance: FULVESTRANT
     Dosage: 500 MG
     Route: 030
  8. WARFARIN [Concomitant]
     Active Substance: WARFARIN
     Indication: Product used for unknown indication
     Dosage: UNK (2MG AND 3MG) 1 TAB ORAL OD HS EVEN DAY
     Route: 065
  9. WARFARIN [Concomitant]
     Active Substance: WARFARIN
     Dosage: 2 MG, QD, (1 TABLET AT BEDTIME ON EVEN CALENDAR DATES)
     Route: 048
  10. WARFARIN [Concomitant]
     Active Substance: WARFARIN
     Dosage: 3 MG, QD, (1 TABLET AT BEDTIME ON ODD CALENDAR DATES)
     Route: 048

REACTIONS (15)
  - Deep vein thrombosis [Unknown]
  - Metastases to bone [Unknown]
  - Breast cancer female [Unknown]
  - Breast cancer recurrent [Unknown]
  - Diabetes mellitus [Unknown]
  - Metastasis [Unknown]
  - Metastases to lung [Unknown]
  - Mediastinum neoplasm [Unknown]
  - Haematochezia [Unknown]
  - Hypertension [Unknown]
  - Oropharyngeal pain [Unknown]
  - Arthralgia [Unknown]
  - Endocrine disorder [Unknown]
  - Body mass index increased [Unknown]
  - COVID-19 [Unknown]

NARRATIVE: CASE EVENT DATE: 20220401
